FAERS Safety Report 24596245 (Version 4)
Quarter: 2024Q4

REPORT INFORMATION
  Report Type: Spontaneous
  Country: JP (occurrence: JP)
  Receive Date: 20241110
  Receipt Date: 20241231
  Transmission Date: 20250115
  Serious: Yes (Life-Threatening, Other)
  Sender: ALEXION PHARMACEUTICALS
  Company Number: JP-ASTRAZENECA-240105991_013120_P_1

PATIENT
  Age: 54 Year

DRUGS (52)
  1. DURVALUMAB [Suspect]
     Active Substance: DURVALUMAB
     Indication: Non-small cell lung cancer
     Dosage: 1500 MILLIGRAM, Q3W
     Route: 041
  2. DURVALUMAB [Suspect]
     Active Substance: DURVALUMAB
     Dosage: 1500 MILLIGRAM, Q3W
  3. DURVALUMAB [Suspect]
     Active Substance: DURVALUMAB
     Dosage: 1500 MILLIGRAM, Q3W
     Route: 041
  4. DURVALUMAB [Suspect]
     Active Substance: DURVALUMAB
     Dosage: 1500 MILLIGRAM, Q3W
  5. DURVALUMAB [Suspect]
     Active Substance: DURVALUMAB
     Dosage: 1500 MILLIGRAM, Q3W
     Route: 041
  6. DURVALUMAB [Suspect]
     Active Substance: DURVALUMAB
     Dosage: 1500 MILLIGRAM, Q3W
     Route: 041
  7. DURVALUMAB [Suspect]
     Active Substance: DURVALUMAB
     Dosage: 1500 MILLIGRAM, Q3W
  8. DURVALUMAB [Suspect]
     Active Substance: DURVALUMAB
     Dosage: 1500 MILLIGRAM, Q3W
  9. DURVALUMAB [Suspect]
     Active Substance: DURVALUMAB
     Dosage: 1500 MILLIGRAM, Q3W
     Route: 041
  10. DURVALUMAB [Suspect]
     Active Substance: DURVALUMAB
     Dosage: 1500 MILLIGRAM, Q3W
  11. DURVALUMAB [Suspect]
     Active Substance: DURVALUMAB
     Dosage: 1500 MILLIGRAM, Q3W
  12. DURVALUMAB [Suspect]
     Active Substance: DURVALUMAB
     Dosage: 1500 MILLIGRAM, Q3W
     Route: 041
  13. DURVALUMAB [Suspect]
     Active Substance: DURVALUMAB
     Dosage: 1500 MILLIGRAM, Q3W
     Route: 041
  14. DURVALUMAB [Suspect]
     Active Substance: DURVALUMAB
     Dosage: 1500 MILLIGRAM, Q3W
  15. DURVALUMAB [Suspect]
     Active Substance: DURVALUMAB
     Dosage: 1500 MILLIGRAM, Q3W
  16. DURVALUMAB [Suspect]
     Active Substance: DURVALUMAB
     Dosage: 1500 MILLIGRAM, Q3W
     Route: 041
  17. DURVALUMAB [Suspect]
     Active Substance: DURVALUMAB
     Dosage: 1500 MILLIGRAM, Q3W
  18. DURVALUMAB [Suspect]
     Active Substance: DURVALUMAB
     Dosage: 1500 MILLIGRAM, Q3W
     Route: 041
  19. DURVALUMAB [Suspect]
     Active Substance: DURVALUMAB
     Dosage: 1500 MILLIGRAM, Q3W
     Route: 041
  20. DURVALUMAB [Suspect]
     Active Substance: DURVALUMAB
     Dosage: 1500 MILLIGRAM, Q3W
  21. TREMELIMUMAB [Suspect]
     Active Substance: TREMELIMUMAB
     Indication: Non-small cell lung cancer
     Dosage: 75 MILLIGRAM, Q3W
     Route: 041
  22. TREMELIMUMAB [Suspect]
     Active Substance: TREMELIMUMAB
     Dosage: 75 MILLIGRAM, Q3W
  23. TREMELIMUMAB [Suspect]
     Active Substance: TREMELIMUMAB
     Dosage: 75 MILLIGRAM, Q3W
     Route: 041
  24. TREMELIMUMAB [Suspect]
     Active Substance: TREMELIMUMAB
     Dosage: 75 MILLIGRAM, Q3W
  25. TREMELIMUMAB [Suspect]
     Active Substance: TREMELIMUMAB
     Dosage: 75 MILLIGRAM, Q3W
     Route: 041
  26. TREMELIMUMAB [Suspect]
     Active Substance: TREMELIMUMAB
     Dosage: 75 MILLIGRAM, Q3W
     Route: 041
  27. TREMELIMUMAB [Suspect]
     Active Substance: TREMELIMUMAB
     Dosage: 75 MILLIGRAM, Q3W
  28. TREMELIMUMAB [Suspect]
     Active Substance: TREMELIMUMAB
     Dosage: 75 MILLIGRAM, Q3W
  29. TREMELIMUMAB [Suspect]
     Active Substance: TREMELIMUMAB
     Dosage: 75 MILLIGRAM, Q3W
     Route: 041
  30. TREMELIMUMAB [Suspect]
     Active Substance: TREMELIMUMAB
     Dosage: 75 MILLIGRAM, Q3W
  31. TREMELIMUMAB [Suspect]
     Active Substance: TREMELIMUMAB
     Dosage: 75 MILLIGRAM, Q3W
  32. TREMELIMUMAB [Suspect]
     Active Substance: TREMELIMUMAB
     Dosage: 75 MILLIGRAM, Q3W
     Route: 041
  33. TREMELIMUMAB [Suspect]
     Active Substance: TREMELIMUMAB
     Dosage: 75 MILLIGRAM, Q3W
     Route: 041
  34. TREMELIMUMAB [Suspect]
     Active Substance: TREMELIMUMAB
     Dosage: 75 MILLIGRAM, Q3W
  35. TREMELIMUMAB [Suspect]
     Active Substance: TREMELIMUMAB
     Dosage: 75 MILLIGRAM, Q3W
  36. TREMELIMUMAB [Suspect]
     Active Substance: TREMELIMUMAB
     Dosage: 75 MILLIGRAM, Q3W
     Route: 041
  37. TREMELIMUMAB [Suspect]
     Active Substance: TREMELIMUMAB
     Dosage: 75 MILLIGRAM, Q3W
  38. TREMELIMUMAB [Suspect]
     Active Substance: TREMELIMUMAB
     Dosage: 75 MILLIGRAM, Q3W
     Route: 041
  39. TREMELIMUMAB [Suspect]
     Active Substance: TREMELIMUMAB
     Dosage: 75 MILLIGRAM, Q3W
     Route: 041
  40. TREMELIMUMAB [Suspect]
     Active Substance: TREMELIMUMAB
     Dosage: 75 MILLIGRAM, Q3W
  41. CARBOPLATIN [Concomitant]
     Active Substance: CARBOPLATIN
     Indication: Non-small cell lung cancer
     Dosage: DOSE UNKNOWN
     Route: 065
  42. CARBOPLATIN [Concomitant]
     Active Substance: CARBOPLATIN
     Dosage: DOSE UNKNOWN
     Route: 065
  43. CARBOPLATIN [Concomitant]
     Active Substance: CARBOPLATIN
     Dosage: DOSE UNKNOWN
     Route: 065
  44. CARBOPLATIN [Concomitant]
     Active Substance: CARBOPLATIN
     Dosage: DOSE UNKNOWN
     Route: 065
  45. CARBOPLATIN [Concomitant]
     Active Substance: CARBOPLATIN
     Dosage: DOSE UNKNOWN
     Route: 065
  46. CARBOPLATIN [Concomitant]
     Active Substance: CARBOPLATIN
     Dosage: DOSE UNKNOWN
     Route: 065
  47. CARBOPLATIN [Concomitant]
     Active Substance: CARBOPLATIN
     Dosage: DOSE UNKNOWN
     Route: 065
  48. CARBOPLATIN [Concomitant]
     Active Substance: CARBOPLATIN
     Dosage: DOSE UNKNOWN
     Route: 065
  49. PACLITAXEL [Concomitant]
     Active Substance: PACLITAXEL
     Indication: Non-small cell lung cancer
     Dosage: DOSE UNKNOWN
     Route: 065
  50. PACLITAXEL [Concomitant]
     Active Substance: PACLITAXEL
     Dosage: DOSE UNKNOWN
     Route: 065
  51. PACLITAXEL [Concomitant]
     Active Substance: PACLITAXEL
     Dosage: DOSE UNKNOWN
     Route: 065
  52. PACLITAXEL [Concomitant]
     Active Substance: PACLITAXEL
     Dosage: DOSE UNKNOWN
     Route: 065

REACTIONS (6)
  - Neutrophil count decreased [Unknown]
  - Appendiceal abscess [Unknown]
  - Appendicitis [Unknown]
  - Malaise [Unknown]
  - Myalgia [Unknown]
  - Diarrhoea [Unknown]
